FAERS Safety Report 11135626 (Version 1)
Quarter: 2015Q2

REPORT INFORMATION
  Report Type: Spontaneous
  Country: US (occurrence: None)
  Receive Date: 20150522
  Receipt Date: 20150522
  Transmission Date: 20150821
  Serious: Yes (Other)
  Sender: FDA-Public Use
  Company Number: None

PATIENT
  Age: 35 Year
  Sex: Female
  Weight: 79.1 kg

DRUGS (8)
  1. CARDIZEM [Concomitant]
     Active Substance: DILTIAZEM HYDROCHLORIDE
  2. CEFAZOLIN [Suspect]
     Active Substance: CEFAZOLIN
     Indication: SEPSIS
     Route: 042
     Dates: start: 20150518, end: 20150519
  3. NUTRFLORA [Concomitant]
  4. CULTURELLE [Concomitant]
     Active Substance: LACTOBACILLUS RHAMNOSUS
  5. TDAP VACCINE [Concomitant]
     Active Substance: DIPHTHERIA AND TETANUS TOXOIDS AND PERTUSSIS VACCINE
  6. KCL [Concomitant]
     Active Substance: POTASSIUM CHLORIDE
  7. ACETAMINOPHEN. [Concomitant]
     Active Substance: ACETAMINOPHEN
  8. ONDANSETRON [Concomitant]
     Active Substance: ONDANSETRON

REACTIONS (2)
  - Rash papular [None]
  - Rash pruritic [None]

NARRATIVE: CASE EVENT DATE: 20150519
